FAERS Safety Report 5825985-8 (Version None)
Quarter: 2008Q3

REPORT INFORMATION
  Report Type: 
  Country: None (occurrence: None)
  Receive Date: 20080729
  Receipt Date: 20080715
  Transmission Date: 20090109
  Serious: Yes (Hospitalization)
  Sender: FDA-Public Use
  Company Number: US-ELI_LILLY_AND_COMPANY-US200806006471

PATIENT
  Sex: Female

DRUGS (13)
  1. FORTEO [Suspect]
     Indication: OSTEOPOROSIS
     Dates: end: 20080313
  2. FORTEO [Suspect]
     Dates: start: 20080626
  3. ACTIGALL [Concomitant]
     Dates: end: 20080301
  4. ACTIGALL [Concomitant]
     Dates: start: 20080101
  5. PREVACID [Concomitant]
     Dates: end: 20080301
  6. PREVACID [Concomitant]
     Dates: start: 20080101
  7. IMURAN [Concomitant]
     Dates: end: 20080301
  8. IMURAN [Concomitant]
     Dates: start: 20080101
  9. PREDNISONE [Concomitant]
     Dates: end: 20080301
  10. PREDNISONE [Concomitant]
     Dates: start: 20080101
  11. PLAQUENIL [Concomitant]
     Dates: end: 20080301
  12. PLAQUENIL [Concomitant]
     Dates: start: 20080101
  13. HYZAAR [Concomitant]
     Dosage: UNK, UNK

REACTIONS (4)
  - BLISTER [None]
  - HYPERSENSITIVITY [None]
  - RASH GENERALISED [None]
  - SYSTEMIC LUPUS ERYTHEMATOSUS [None]
